FAERS Safety Report 25043187 (Version 2)
Quarter: 2025Q1

REPORT INFORMATION
  Report Type: Spontaneous
  Country: IT (occurrence: IT)
  Receive Date: 20250305
  Receipt Date: 20250307
  Transmission Date: 20250408
  Serious: No
  Sender: SANDOZ
  Company Number: IT-SANDOZ-SDZ2025IT012912

PATIENT
  Age: 9 Year
  Sex: Male

DRUGS (2)
  1. OMNITROPE [Suspect]
     Active Substance: SOMATROPIN
     Route: 065
  2. OMNITROPE [Suspect]
     Active Substance: SOMATROPIN
     Indication: Product used for unknown indication
     Route: 058

REACTIONS (3)
  - Therapy interrupted [Unknown]
  - Device mechanical issue [Unknown]
  - Device difficult to use [Unknown]
